FAERS Safety Report 4700409-2 (Version None)
Quarter: 2005Q2

REPORT INFORMATION
  Report Type: 
  Country: None (occurrence: None)
  Receive Date: 20050209
  Receipt Date: 20050209
  Transmission Date: 20051028
  Serious: Yes (Other)
  Sender: FDA-Public Use
  Company Number: None

PATIENT
  Age: 76 Year
  Sex: Female
  Weight: 68.0396 kg

DRUGS (5)
  1. COUMADIN [Suspect]
     Indication: ATRIAL FIBRILLATION
     Dosage: 6MG PO
     Route: 048
     Dates: start: 19900101
  2. LASIX [Suspect]
     Indication: CARDIAC FAILURE CONGESTIVE
     Dosage: 120MG QD PO
     Route: 048
     Dates: start: 19980101
  3. LASIX [Suspect]
     Indication: CARDIOMYOPATHY
     Dosage: 120MG QD PO
     Route: 048
     Dates: start: 19980101
  4. LANOXIN [Concomitant]
  5. ENALAPRIL MALEATE [Concomitant]

REACTIONS (3)
  - INTERNATIONAL NORMALISED RATIO ABNORMAL [None]
  - THERAPEUTIC RESPONSE UNEXPECTED WITH DRUG SUBSTITUTION [None]
  - WEIGHT INCREASED [None]
